FAERS Safety Report 9152517 (Version 1)
Quarter: 2013Q1

REPORT INFORMATION
  Report Type: Spontaneous
  Country: US (occurrence: US)
  Receive Date: 20130308
  Receipt Date: 20130308
  Transmission Date: 20140127
  Serious: No
  Sender: FDA-Public Use
  Company Number: US-ASTRAZENECA-2013SE13058

PATIENT
  Sex: Female

DRUGS (2)
  1. TENORMIN [Suspect]
     Dosage: GENERIC
     Route: 065
  2. UNKNOWN [Concomitant]

REACTIONS (2)
  - Adverse event [Unknown]
  - Palpitations [Unknown]
